FAERS Safety Report 9122134 (Version 1)
Quarter: 2013Q1

REPORT INFORMATION
  Report Type: Spontaneous
  Country: US (occurrence: US)
  Receive Date: 20130227
  Receipt Date: 20130227
  Transmission Date: 20140127
  Serious: No
  Sender: FDA-Public Use
  Company Number: US-BAYER-2013-022334

PATIENT
  Sex: 0

DRUGS (1)
  1. STIVARGA [Suspect]
     Dosage: DAILY DOSE 160 MG

REACTIONS (1)
  - Fatigue [Recovered/Resolved]
